FAERS Safety Report 6074635-7 (Version None)
Quarter: 2009Q1

REPORT INFORMATION
  Report Type: 
  Country: None (occurrence: None)
  Receive Date: 20090209
  Receipt Date: 20090209
  Transmission Date: 20090719
  Serious: Yes (Life-Threatening, Hospitalization, Disabling, Other)
  Sender: FDA-Public Use
  Company Number: None

PATIENT
  Age: 61 Year
  Sex: Female
  Weight: 76.2043 kg

DRUGS (1)
  1. PROTOPIC [Suspect]
     Indication: ECZEMA
     Dosage: APPLY TO AFFECTED AREAS 2 X DAILY AS NEEDE  TOP
     Route: 061
     Dates: start: 20011205, end: 20080930

REACTIONS (3)
  - HYSTERECTOMY [None]
  - SALPINGO-OOPHORECTOMY BILATERAL [None]
  - SARCOMA [None]
